FAERS Safety Report 5723230-5 (Version None)
Quarter: 2008Q2

REPORT INFORMATION
  Report Type: 
  Country: None (occurrence: None)
  Receive Date: 20080430
  Receipt Date: 20080424
  Transmission Date: 20081010
  Serious: Yes (Hospitalization)
  Sender: FDA-Public Use
  Company Number: IT-SANOFI-SYNTHELABO-A06200800122

PATIENT
  Sex: Male

DRUGS (3)
  1. ELOXATIN [Suspect]
     Indication: COLON CANCER METASTATIC
     Route: 041
     Dates: start: 20071206, end: 20071206
  2. CALCIO LEVOFOLINATO TEVA [Concomitant]
     Indication: COLON CANCER METASTATIC
     Route: 041
     Dates: start: 20071206, end: 20071206
  3. FLUOROURACILE TEVA [Concomitant]
     Indication: COLON CANCER METASTATIC
     Route: 041
     Dates: start: 20071206, end: 20071206

REACTIONS (2)
  - CONGESTIVE CARDIOMYOPATHY [None]
  - LUNG DISORDER [None]
